FAERS Safety Report 16825919 (Version 2)
Quarter: 2020Q1

REPORT INFORMATION
  Report Type: Spontaneous
  Country: JP (occurrence: JP)
  Receive Date: 20190919
  Receipt Date: 20200103
  Transmission Date: 20200409
  Serious: Yes (Death, Hospitalization, Other)
  Sender: FDA-Public Use
  Company Number: JP-009507513-1909JPN001245J

PATIENT
  Age: 83 Year
  Sex: Male
  Weight: 66 kg

DRUGS (4)
  1. NATRIX [Concomitant]
     Active Substance: INDAPAMIDE
     Dosage: 1 DOSAGE FORM
     Route: 048
     Dates: start: 20190830
  2. FLAVERIC [Concomitant]
     Active Substance: BENPROPERINE PHOSPHATE
     Indication: NON-SMALL CELL LUNG CANCER
     Dosage: 20 MILLIGRAM, TID
     Route: 048
     Dates: end: 20190905
  3. ZOLPIDEM TARTRATE. [Concomitant]
     Active Substance: ZOLPIDEM TARTRATE
     Dosage: 5 MILLIGRAM, QD
     Route: 048
     Dates: end: 20190905
  4. KEYTRUDA [Suspect]
     Active Substance: PEMBROLIZUMAB
     Indication: NON-SMALL CELL LUNG CANCER
     Dosage: 200 MILLIGRAM, Q3W
     Route: 041
     Dates: start: 20190829, end: 20190829

REACTIONS (3)
  - Pleural effusion [Unknown]
  - Cerebral infarction [Unknown]
  - Interstitial lung disease [Fatal]

NARRATIVE: CASE EVENT DATE: 20190902
